FAERS Safety Report 5825064-X (Version None)
Quarter: 2008Q3

REPORT INFORMATION
  Report Type: 
  Country: None (occurrence: None)
  Receive Date: 20080729
  Receipt Date: 20080728
  Transmission Date: 20090109
  Serious: Yes (Other)
  Sender: FDA-Public Use
  Company Number: US-BRISTOL-MYERS SQUIBB COMPANY-14279863

PATIENT
  Age: 45 Year
  Sex: Male

DRUGS (3)
  1. AVAPRO [Suspect]
     Indication: HYPERTENSION
     Route: 065
     Dates: start: 20080501
  2. AVANDIA [Suspect]
     Indication: TYPE 2 DIABETES MELLITUS
     Dosage: FORM:TABLET
     Route: 048
     Dates: start: 20080501
  3. GLIBENCLAMIDE [Concomitant]

REACTIONS (1)
  - PAPILLOEDEMA [None]
